FAERS Safety Report 16817668 (Version 1)
Quarter: 2019Q3

REPORT INFORMATION
  Report Type: Spontaneous
  Country: US (occurrence: US)
  Receive Date: 20190917
  Receipt Date: 20190917
  Transmission Date: 20191005
  Serious: Yes (Death, Hospitalization)
  Sender: FDA-Public Use
  Company Number: US-PFIZER INC-2019384925

PATIENT
  Age: 4 Decade
  Sex: Male

DRUGS (1)
  1. FENTANYL CITRATE. [Suspect]
     Active Substance: FENTANYL CITRATE
     Dosage: UNK
     Route: 045
     Dates: start: 201901

REACTIONS (3)
  - Cardiac arrest [Fatal]
  - Brain death [Fatal]
  - Accidental overdose [Fatal]

NARRATIVE: CASE EVENT DATE: 201901
